FAERS Safety Report 5056187-3 (Version None)
Quarter: 2006Q3

REPORT INFORMATION
  Report Type: 
  Country: None (occurrence: None)
  Receive Date: 20060717
  Receipt Date: 20060705
  Transmission Date: 20061208
  Serious: Yes (Hospitalization, Other)
  Sender: FDA-Public Use
  Company Number: 2006BH011720

PATIENT
  Age: 5 Year
  Sex: Female

DRUGS (2)
  1. CEFTRIAXONE IN PLASTIC CONTAINER (CEFTRIAXONE SODIUM) [Suspect]
     Indication: PNEUMONIA
  2. AMPICILLIN SODIUM/SULBACTAM SODIUM [Concomitant]

REACTIONS (6)
  - DRUG SPECIFIC ANTIBODY PRESENT [None]
  - HAEMOLYTIC ANAEMIA [None]
  - NEPHRITIS INTERSTITIAL [None]
  - PERITONEAL DIALYSIS [None]
  - RENAL FAILURE ACUTE [None]
  - WHITE BLOOD CELL COUNT INCREASED [None]
